FAERS Safety Report 10239923 (Version 1)
Quarter: 2014Q2

REPORT INFORMATION
  Report Type: Spontaneous
  Country: US (occurrence: US)
  Receive Date: 20140616
  Receipt Date: 20140616
  Transmission Date: 20141212
  Serious: Yes (Hospitalization, Other)
  Sender: FDA-Public Use
  Company Number: US-RB-068701-14

PATIENT
  Age: 42 Year
  Sex: Female

DRUGS (5)
  1. SUBOXONE FILM [Suspect]
     Dosage: SUBOXONE FILM; CUT THE FILM TO ACHIEVE DOSING
     Route: 060
     Dates: start: 201402, end: 201402
  2. SUBOXONE FILM [Suspect]
     Indication: DRUG DEPENDENCE
     Dosage: SUBOXONE FILM
     Route: 060
     Dates: start: 201403, end: 201404
  3. SUBOXONE FILM [Suspect]
     Dosage: SUBOXONE FILM; TAPERED TO 4 MG IN THE MORNING AND 2 MG IN THE EVENING BY CUTTING THE FILM
     Route: 060
     Dates: start: 201404
  4. XANAX [Concomitant]
     Indication: ANXIETY
     Route: 048
  5. OMEPRAZOLE [Concomitant]
     Indication: GASTROINTESTINAL DISORDER
     Dosage: DOSING DETAILS UNKNOWN
     Route: 048

REACTIONS (11)
  - Substance abuse [Recovered/Resolved]
  - Wrong technique in drug usage process [Not Recovered/Not Resolved]
  - Hallucination, auditory [Not Recovered/Not Resolved]
  - Hallucination, visual [Not Recovered/Not Resolved]
  - Loss of consciousness [Not Recovered/Not Resolved]
  - Somnolence [Not Recovered/Not Resolved]
  - Dysuria [Not Recovered/Not Resolved]
  - Oedema peripheral [Not Recovered/Not Resolved]
  - Weight increased [Not Recovered/Not Resolved]
  - Impaired driving ability [Not Recovered/Not Resolved]
  - Drug withdrawal syndrome [Not Recovered/Not Resolved]
